FAERS Safety Report 22141075 (Version 2)
Quarter: 2023Q2

REPORT INFORMATION
  Report Type: Spontaneous
  Country: US (occurrence: US)
  Receive Date: 20230327
  Receipt Date: 20230628
  Transmission Date: 20230721
  Serious: No
  Sender: FDA-Public Use
  Company Number: US-CORIUM, LLC-2023COR000044

PATIENT
  Age: 8 Year
  Sex: Female

DRUGS (2)
  1. AZSTARYS [Suspect]
     Active Substance: DEXMETHYLPHENIDATE HYDROCHLORIDE\SERDEXMETHYLPHENIDATE CHLORIDE
     Indication: Attention deficit hyperactivity disorder
     Dosage: 26.1 MG/5.2 MG
     Route: 048
     Dates: start: 20230211, end: 20230211
  2. BIOTIN [Concomitant]
     Active Substance: BIOTIN
     Indication: Biotin deficiency
     Dosage: UNK

REACTIONS (9)
  - Emotional disorder [Recovered/Resolved]
  - Tic [Recovered/Resolved]
  - Paraesthesia [Recovered/Resolved]
  - Mood swings [Recovered/Resolved]
  - Anxiety [Recovered/Resolved]
  - Dyskinesia [Recovered/Resolved]
  - Vision blurred [Recovered/Resolved]
  - Pyrexia [Recovered/Resolved]
  - Muscle twitching [Recovered/Resolved]

NARRATIVE: CASE EVENT DATE: 20230211
